FAERS Safety Report 9178899 (Version 2)
Quarter: 2013Q1

REPORT INFORMATION
  Report Type: Report from Study
  Country: CA (occurrence: CA)
  Receive Date: 20130321
  Receipt Date: 20130322
  Transmission Date: 20140127
  Serious: Yes (Other)
  Sender: FDA-Public Use
  Company Number: CA-ROCHE-1204433

PATIENT
  Sex: Female
  Weight: 71.2 kg

DRUGS (6)
  1. HERCEPTIN [Suspect]
     Indication: BREAST CANCER METASTATIC
     Route: 042
     Dates: start: 201001, end: 201209
  2. DOCETAXEL [Suspect]
     Indication: BREAST CANCER METASTATIC
     Route: 065
     Dates: start: 2010
  3. DOCETAXEL [Suspect]
     Route: 065
     Dates: start: 201205, end: 201209
  4. ARTHROTEC [Concomitant]
  5. NASONEX [Concomitant]
     Route: 045
  6. AERIUS [Concomitant]

REACTIONS (2)
  - Pulmonary oedema [Not Recovered/Not Resolved]
  - Metastases to lymph nodes [Unknown]
